FAERS Safety Report 9214257 (Version 3)
Quarter: 2013Q2

REPORT INFORMATION
  Report Type: Spontaneous
  Country: US (occurrence: US)
  Receive Date: 20130405
  Receipt Date: 20130424
  Transmission Date: 20140414
  Serious: Yes (Hospitalization, Other)
  Sender: FDA-Public Use
  Company Number: US-PFIZER INC-2013108035

PATIENT
  Age: 56 Year
  Sex: Female
  Weight: 65.8 kg

DRUGS (4)
  1. PROTONIX [Suspect]
     Indication: GASTROOESOPHAGEAL REFLUX DISEASE
     Dosage: 40 MG, 1X/DAY
     Route: 048
     Dates: start: 20080117
  2. LISINOPRIL [Concomitant]
     Indication: HYPERTENSION
     Dosage: UNK
  3. ATENOLOL [Concomitant]
     Indication: HYPERTENSION
     Dosage: 50 MG, 1X/DAY
  4. SIMVASTATIN [Concomitant]
     Indication: BLOOD CHOLESTEROL ABNORMAL
     Dosage: 20 MG, 1X/DAY

REACTIONS (1)
  - Ovarian cancer [Recovering/Resolving]
